FAERS Safety Report 15316802 (Version 1)
Quarter: 2018Q3

REPORT INFORMATION
  Report Type: Spontaneous
  Country: FR (occurrence: FR)
  Receive Date: 20180824
  Receipt Date: 20180824
  Transmission Date: 20181010
  Serious: Yes (Hospitalization, Other)
  Sender: FDA-Public Use
  Company Number: FR-SA-2018SA229194

PATIENT
  Age: 74 Year
  Sex: Female
  Weight: 50 kg

DRUGS (3)
  1. INDAPAMIDE. [Suspect]
     Active Substance: INDAPAMIDE
     Indication: HYPERTENSION
     Dosage: 10MG/2.5MG
     Route: 048
     Dates: start: 20180704, end: 20180728
  2. COLCHIMAX [Suspect]
     Active Substance: COLCHICINE\DICYCLOMINE HYDROCHLORIDE
     Indication: ERYTHEMA NODOSUM
     Route: 048
     Dates: end: 20180728
  3. PIROXICAM. [Suspect]
     Active Substance: PIROXICAM
     Indication: PAIN
     Route: 048
     Dates: start: 201807, end: 20180727

REACTIONS (2)
  - Agranulocytosis [Recovering/Resolving]
  - Pyrexia [Recovered/Resolved]

NARRATIVE: CASE EVENT DATE: 20180727
